FAERS Safety Report 9734606 (Version 4)
Quarter: 2014Q2

REPORT INFORMATION
  Report Type: Spontaneous
  Country: US (occurrence: US)
  Receive Date: 20131206
  Receipt Date: 20140620
  Transmission Date: 20141212
  Serious: Yes (Other)
  Sender: FDA-Public Use
  Company Number: US-BEH-2013039154

PATIENT
  Age: 46 Year
  Sex: Female
  Weight: 111 kg

DRUGS (24)
  1. ZEMAIRA [Suspect]
     Indication: ALPHA-1 ANTI-TRYPSIN DEFICIENCY
     Dosage: 065 MG VIAL; 0.08 ML/KG/MIN (9.5 ML/MIN)
     Route: 042
  2. ZEMAIRA [Suspect]
     Dosage: 20-MAR-2014 TO 07-APR-2014
  3. DETROL LA [Concomitant]
  4. ZOLPIDEM [Concomitant]
  5. LITHIUM CARBONATE [Concomitant]
  6. AFRIN [Concomitant]
  7. GABAPENTIN [Concomitant]
  8. FLUOXETINE [Concomitant]
  9. TOPIRAMATE [Concomitant]
  10. ONDANSETRON [Concomitant]
  11. DICYCLOMINE [Concomitant]
  12. DIPHENHYDRAMINE [Concomitant]
  13. IBUPROFEN [Concomitant]
  14. HEPARIN [Concomitant]
  15. SODIUM CHLORIDE [Concomitant]
  16. EPIPEN [Concomitant]
  17. ZITHROMAX [Concomitant]
  18. MINOCYCLINE [Concomitant]
  19. CIPRO [Concomitant]
  20. MUPIROCIN [Concomitant]
  21. PREDNISONE [Concomitant]
  22. LOMOTIL [Concomitant]
  23. NEXIUM [Concomitant]
  24. FLOVENT [Concomitant]

REACTIONS (4)
  - Pulmonary pain [Unknown]
  - Staphylococcal infection [Recovered/Resolved]
  - Infusion site infection [Recovered/Resolved]
  - Dysphagia [Unknown]
